FAERS Safety Report 25125010 (Version 1)
Quarter: 2025Q1

REPORT INFORMATION
  Report Type: Report from Study
  Country: US (occurrence: US)
  Receive Date: 20250326
  Receipt Date: 20250326
  Transmission Date: 20250409
  Serious: Yes (Hospitalization)
  Sender: EISAI
  Company Number: US-Eisai-EC-2025-186333

PATIENT
  Age: 65 Year
  Sex: Female
  Weight: 53.25 kg

DRUGS (8)
  1. LENVIMA [Suspect]
     Active Substance: LENVATINIB
     Indication: Endometrial cancer
     Dates: start: 20240208, end: 20250312
  2. AMLODIPINE [Concomitant]
     Active Substance: AMLODIPINE BESYLATE
  3. ASPIRIN [Concomitant]
     Active Substance: ASPIRIN
  4. ATORVASTATIN [Concomitant]
     Active Substance: ATORVASTATIN
  5. KEYTRUDA [Concomitant]
     Active Substance: PEMBROLIZUMAB
  6. VALSARTAN AND HYDROCHLOROTHIAZIDE [Concomitant]
     Active Substance: HYDROCHLOROTHIAZIDE\VALSARTAN
  7. VITAMIN B6 [Concomitant]
     Active Substance: PYRIDOXINE HYDROCHLORIDE
  8. VITAMIN D3 [Concomitant]
     Active Substance: CHOLECALCIFEROL

REACTIONS (2)
  - Hyponatraemia [Unknown]
  - Hypokalaemia [Unknown]

NARRATIVE: CASE EVENT DATE: 20250301
